FAERS Safety Report 11176551 (Version 1)
Quarter: 2015Q2

REPORT INFORMATION
  Report Type: Spontaneous
  Country: IT (occurrence: IT)
  Receive Date: 20150610
  Receipt Date: 20150610
  Transmission Date: 20150821
  Serious: Yes (Death, Other)
  Sender: FDA-Public Use
  Company Number: IT-TEVA-568258ACC

PATIENT
  Age: 78 Year
  Sex: Female

DRUGS (5)
  1. LANOXIN [Interacting]
     Active Substance: DIGOXIN
     Indication: CARDIAC FAILURE CHRONIC
     Dosage: .12 MILLIGRAM DAILY;
     Route: 048
     Dates: start: 20100101, end: 20150519
  2. CARDIOASPIRIN - 100 MG COMPRESSE GASTRORESISTENTI [Concomitant]
     Active Substance: ASPIRIN
     Indication: PRODUCT USED FOR UNKNOWN INDICATION
     Dosage: GASTRO-RESISTANT TABLET
  3. MOTILIUM - 10 MG COMPRESSE RIVESTITE CON FILM [Concomitant]
     Indication: PRODUCT USED FOR UNKNOWN INDICATION
  4. LACTULOSE. [Suspect]
     Active Substance: LACTULOSE
     Indication: CONSTIPATION
     Dosage: 3 DOSAGE FORMS DAILY;
     Route: 048
     Dates: start: 20150201, end: 20150519
  5. SODIO FOSFATO SOFAR - 16%/6% SOLUZIONE RETTALE - SOFAR S.P.A. [Interacting]
     Active Substance: SODIUM PHOSPHATE, DIBASIC, ANHYDROUS\SODIUM PHOSPHATE, MONOBASIC, ANHYDROUS
     Indication: CONSTIPATION
     Dosage: 1 DF TOTAL (RECTAL SOLUTION)
     Route: 054
     Dates: start: 20150519, end: 20150519

REACTIONS (13)
  - Diarrhoea [Fatal]
  - Hyperkalaemia [Fatal]
  - Rales [None]
  - Cardiac arrest [Unknown]
  - Intestinal dilatation [None]
  - Drug interaction [Unknown]
  - Abdominal pain [Fatal]
  - Tension [Unknown]
  - Tachypnoea [Unknown]
  - Faecaloma [None]
  - Flatulence [None]
  - Acute abdomen [Fatal]
  - Aortic calcification [None]

NARRATIVE: CASE EVENT DATE: 20150519
